FAERS Safety Report 20785178 (Version 1)
Quarter: 2022Q2

REPORT INFORMATION
  Report Type: Spontaneous
  Country: US (occurrence: None)
  Receive Date: 20220504
  Receipt Date: 20220504
  Transmission Date: 20220721
  Serious: Yes (unspecified)
  Sender: FDA-Public Use
  Company Number: None

PATIENT
  Age: 34 Year
  Sex: Female
  Weight: 99.9 kg

DRUGS (2)
  1. ENTYVIO [Suspect]
     Active Substance: VEDOLIZUMAB
     Indication: Crohn^s disease
     Dosage: OTHER FREQUENCY : LOADING DOSE PHASE;?
     Route: 041
     Dates: start: 20220504
  2. ENTYVIO [Concomitant]
     Active Substance: VEDOLIZUMAB
     Dates: start: 20220504, end: 20220504

REACTIONS (6)
  - Infusion related reaction [None]
  - Pruritus [None]
  - Sensation of foreign body [None]
  - Erythema [None]
  - Erythema [None]
  - Anxiety [None]

NARRATIVE: CASE EVENT DATE: 20220504
